FAERS Safety Report 5705256-0 (Version None)
Quarter: 2008Q2

REPORT INFORMATION
  Report Type: 
  Country: None (occurrence: None)
  Receive Date: 20080411
  Receipt Date: 20080403
  Transmission Date: 20081010
  Serious: Yes (Other)
  Sender: FDA-Public Use
  Company Number: CHPA2008US03434

PATIENT
  Age: 82 Year
  Sex: Male

DRUGS (9)
  1. SLOW-FE UNKNOWN (NCH)(UNKNOWN) TABLET [Suspect]
     Indication: MINERAL SUPPLEMENTATION
     Dosage: 160 MG, BID, ORAL
     Route: 048
     Dates: start: 20080213, end: 20080201
  2. GLUCOPHAGE [Concomitant]
  3. METOPROLOL TARTRATE [Concomitant]
  4. OCUVITE/01053801/ (ASCORBIC ACID, RETINOL, TOCOPHEROL) [Concomitant]
  5. STOOL SOFTENER (DOCUSATE SODIUM) [Concomitant]
  6. CENTRUM (MINERALS NOS, VITAMINS NOS) [Concomitant]
  7. CALCIUM (CALCIUM) [Concomitant]
  8. MAGNESIUM (MAGNESIUM) [Concomitant]
  9. ZINC (ZINC) [Concomitant]

REACTIONS (6)
  - ANOREXIA [None]
  - ERUCTATION [None]
  - MALAISE [None]
  - PAIN [None]
  - TENDERNESS [None]
  - VOMITING [None]
